FAERS Safety Report 24355823 (Version 2)
Quarter: 2024Q3

REPORT INFORMATION
  Report Type: Spontaneous
  Country: IR (occurrence: IR)
  Receive Date: 20240924
  Receipt Date: 20240930
  Transmission Date: 20241017
  Serious: Yes (Life-Threatening, Hospitalization, Other)
  Sender: ALKEM
  Company Number: None

PATIENT
  Age: 64 Year
  Sex: Female
  Weight: 65 kg

DRUGS (20)
  1. ROSUVASTATIN [Interacting]
     Active Substance: ROSUVASTATIN\ROSUVASTATIN CALCIUM
     Indication: Diabetic nephropathy
     Dosage: 40 MILLIGRAM, QD ( EVERY 1 DAY)
     Route: 065
  2. SITAGLIPTIN [Interacting]
     Active Substance: SITAGLIPTIN
     Indication: Diabetic nephropathy
     Dosage: 50 MILLIGRAM, BID (TWICE A DAY)
     Route: 065
  3. METFORMIN HYDROCHLORIDE\SITAGLIPTIN [Interacting]
     Active Substance: METFORMIN HYDROCHLORIDE\SITAGLIPTIN
     Indication: Diabetes mellitus
     Dosage: 1 DOSAGE FORM, BID (EVERY 12 HOUR)
     Route: 048
  4. METFORMIN HYDROCHLORIDE\SITAGLIPTIN [Interacting]
     Active Substance: METFORMIN HYDROCHLORIDE\SITAGLIPTIN
     Dosage: 500 MILLIGRAM, BID
     Route: 065
  5. METFORMIN HYDROCHLORIDE\SITAGLIPTIN [Interacting]
     Active Substance: METFORMIN HYDROCHLORIDE\SITAGLIPTIN
     Dosage: 50 MILLIGRAM, BID
     Route: 065
  6. ASPIRIN [Concomitant]
     Active Substance: ASPIRIN
     Indication: Product used for unknown indication
     Dosage: 80 MILLIGRAM, QD (EVERY 1 DAY)
     Route: 065
  7. CLOPIDOGREL [Concomitant]
     Active Substance: CLOPIDOGREL BISULFATE
     Indication: Product used for unknown indication
     Dosage: 75 MILLIGRAM, QD (EVERY 1 DAY)
     Route: 065
  8. CALCIUM GLUCONATE [Concomitant]
     Active Substance: CALCIUM GLUCONATE
     Indication: Hyperkalaemia
     Dosage: UNK, INJECTION
     Route: 065
  9. ESCITALOPRAM [Concomitant]
     Active Substance: ESCITALOPRAM OXALATE
     Indication: Product used for unknown indication
     Dosage: 10 MILLIGRAM, QD (EVERY 1 DAY)
     Route: 065
  10. GABAPENTIN [Concomitant]
     Active Substance: GABAPENTIN
     Indication: Product used for unknown indication
     Dosage: 100 MILLIGRAM, QD (EVERY 1 DAY)
     Route: 065
  11. HYDROCHLOROTHIAZIDE [Concomitant]
     Active Substance: HYDROCHLOROTHIAZIDE
     Indication: Product used for unknown indication
     Dosage: 25 MILLIGRAM, QD (EVERY 1 DAY)
     Route: 065
  12. INDAPAMIDE [Concomitant]
     Active Substance: INDAPAMIDE
     Indication: Product used for unknown indication
     Dosage: 2.5 MILLIGRAM, QD (EVERY 1 DAY)
     Route: 065
  13. LANTUS [Concomitant]
     Active Substance: INSULIN GLARGINE
     Indication: Diabetes mellitus
     Dosage: 30 INTERNATIONAL UNIT, QD ( EVERY 1 DAY)
     Route: 065
  14. LANTUS [Concomitant]
     Active Substance: INSULIN GLARGINE
     Dosage: 10 UNITS
     Route: 058
  15. LANTUS [Concomitant]
     Active Substance: INSULIN GLARGINE
     Dosage: 10 UNITS
     Route: 042
  16. NITROGLYCERIN [Concomitant]
     Active Substance: NITROGLYCERIN
     Indication: Product used for unknown indication
     Dosage: 6.4 MILLIGRAM, BID (EVERY 12 HOUR)
     Route: 065
  17. PANTOPRAZOLE [Concomitant]
     Active Substance: PANTOPRAZOLE
     Indication: Product used for unknown indication
     Dosage: 40 MILLIGRAM, QD (EVERY 1 DAY)
     Route: 065
  18. Synoripa [Concomitant]
     Indication: Diabetes mellitus
     Dosage: 1 DOSAGE FORM, QD (EVERY 1 DAY)
     Route: 048
  19. SODIUM BICARBONATE [Concomitant]
     Active Substance: SODIUM BICARBONATE
     Indication: Product used for unknown indication
     Dosage: UNK
     Route: 042
  20. Valzomix [Concomitant]
     Indication: Diabetic nephropathy
     Dosage: 1 DOSAGE FORM, QD (EVERY 1 DAY)
     Route: 065

REACTIONS (3)
  - Drug interaction [Recovering/Resolving]
  - Acute kidney injury [Recovering/Resolving]
  - Rhabdomyolysis [Recovering/Resolving]
